FAERS Safety Report 14294282 (Version 2)
Quarter: 2021Q2

REPORT INFORMATION
  Report Type: Report from Study
  Country: None (occurrence: CA)
  Receive Date: 20171217
  Receipt Date: 20210525
  Transmission Date: 20210716
  Serious: Yes (Hospitalization, Other)
  Sender: FDA-Public Use
  Company Number: CA-ABBVIE-17K-028-2191780-00

PATIENT
  Sex: Male

DRUGS (2)
  1. HUMIRA [Suspect]
     Active Substance: ADALIMUMAB
     Route: 058
     Dates: start: 201712
  2. HUMIRA [Suspect]
     Active Substance: ADALIMUMAB
     Indication: ANKYLOSING SPONDYLITIS
     Route: 058
     Dates: start: 20160324, end: 2017

REACTIONS (16)
  - Affective disorder [Unknown]
  - Injection site pain [Not Recovered/Not Resolved]
  - Feeling abnormal [Unknown]
  - Therapeutic response unexpected [Unknown]
  - Bipolar disorder [Not Recovered/Not Resolved]
  - Musculoskeletal stiffness [Recovered/Resolved]
  - Nasopharyngitis [Recovered/Resolved]
  - Arthralgia [Not Recovered/Not Resolved]
  - Exploding head syndrome [Unknown]
  - Therapeutic product effect decreased [Unknown]
  - Suicidal ideation [Not Recovered/Not Resolved]
  - Pre-existing condition improved [Unknown]
  - Therapeutic response shortened [Unknown]
  - Influenza [Recovered/Resolved]
  - Pain [Recovered/Resolved]
  - Pain [Not Recovered/Not Resolved]

NARRATIVE: CASE EVENT DATE: 2017
